FAERS Safety Report 5107525-4 (Version None)
Quarter: 2006Q3

REPORT INFORMATION
  Report Type: 
  Country: None (occurrence: None)
  Receive Date: 20060731
  Receipt Date: 20060407
  Transmission Date: 20061208
  Serious: No
  Sender: FDA-Public Use
  Company Number: 2006PV011727

PATIENT
  Age: 55 Year
  Sex: Male
  Weight: 116.1208 kg

DRUGS (15)
  1. BYETTA [Suspect]
     Indication: DIABETES MELLITUS NON-INSULIN-DEPENDENT
     Dosage: 5 MCG; BID; SC
     Route: 058
     Dates: start: 20060309
  2. LANTUS [Concomitant]
  3. AMARYL [Concomitant]
  4. AVANDAMET [Concomitant]
  5. TOPAMAX [Concomitant]
  6. CYMBALTA [Concomitant]
  7. PERCOCET-5 [Concomitant]
  8. IMITREX [Concomitant]
  9. VALIUM [Concomitant]
  10. TYLENOL [Concomitant]
  11. IBUPROFEN [Concomitant]
  12. COREG [Concomitant]
  13. DOXAZOSIN MESYLATE [Concomitant]
  14. HYDROCHLOROTHIAZIDE [Concomitant]
  15. LISINOPRIL [Concomitant]

REACTIONS (5)
  - BLOOD GLUCOSE INCREASED [None]
  - FEELING ABNORMAL [None]
  - INJECTION SITE PAIN [None]
  - NAUSEA [None]
  - WEIGHT DECREASED [None]
